FAERS Safety Report 7972180-2 (Version None)
Quarter: 2011Q4

REPORT INFORMATION
  Report Type: 
  Country: None (occurrence: None)
  Receive Date: 20111212
  Receipt Date: 20111130
  Transmission Date: 20120403
  Serious: Yes (Hospitalization)
  Sender: FDA-Public Use
  Company Number: ES-ELI_LILLY_AND_COMPANY-ES201112000044

PATIENT
  Sex: Female
  Weight: 70 kg

DRUGS (2)
  1. FORTEO [Suspect]
     Indication: OSTEOPOROSIS
     Dosage: 20 UG, QD
     Route: 058
     Dates: start: 20110614
  2. ENOXAPARIN SODIUM [Concomitant]
     Indication: HEPARIN NEUTRALISATION THERAPY
     Dosage: 1 DF, QD
     Route: 058

REACTIONS (1)
  - HIP FRACTURE [None]
